FAERS Safety Report 5924089-3 (Version None)
Quarter: 2008Q3

REPORT INFORMATION
  Report Type: 
  Country: None (occurrence: None)
  Receive Date: 20080909
  Receipt Date: 20080328
  Transmission Date: 20090109
  Serious: Yes (Death)
  Sender: FDA-Public Use
  Company Number: 163-20785-08031869

PATIENT
  Age: 75 Year
  Sex: Male

DRUGS (4)
  1. THALOMID [Suspect]
     Indication: MULTIPLE MYELOMA
     Dosage: 100 MG, 1 IN 1 D, ORAL : 200 MG, 1 IN 1 D, ORAL
     Route: 048
     Dates: start: 20071218, end: 20080101
  2. THALOMID [Suspect]
     Indication: MULTIPLE MYELOMA
     Dosage: 100 MG, 1 IN 1 D, ORAL : 200 MG, 1 IN 1 D, ORAL
     Route: 048
     Dates: start: 20080122
  3. HYDROCHLOROTHIAZIDE [Concomitant]
  4. BETA BLOCKERS (BETA BLOCKING AGENTS) [Concomitant]

REACTIONS (1)
  - DEATH [None]
